FAERS Safety Report 25953847 (Version 1)
Quarter: 2025Q4

REPORT INFORMATION
  Report Type: Spontaneous
  Country: US (occurrence: US)
  Receive Date: 20251023
  Receipt Date: 20251023
  Transmission Date: 20260117
  Serious: Yes (Hospitalization, Disabling)
  Sender: NOVO NORDISK
  Company Number: US-NOVOPROD-1539161

PATIENT
  Age: 57 Year
  Sex: Male

DRUGS (1)
  1. VICTOZA [Suspect]
     Active Substance: LIRAGLUTIDE
     Indication: Product used for unknown indication
     Dosage: UNK
     Dates: start: 2010

REACTIONS (5)
  - Toe amputation [Unknown]
  - Toe amputation [Unknown]
  - Retinal detachment [Unknown]
  - Neuropathic arthropathy [Unknown]
  - Neuropathic arthropathy [Unknown]

NARRATIVE: CASE EVENT DATE: 20170101
